FAERS Safety Report 23436452 (Version 1)
Quarter: 2024Q1

REPORT INFORMATION
  Report Type: Spontaneous
  Country: PE (occurrence: PE)
  Receive Date: 20240124
  Receipt Date: 20240124
  Transmission Date: 20240410
  Serious: Yes (Other)
  Sender: FDA-Public Use
  Company Number: PE-BAYER-2024A011460

PATIENT
  Sex: Male

DRUGS (1)
  1. EYLEA [Suspect]
     Active Substance: AFLIBERCEPT
     Indication: Macular oedema
     Dosage: 2 MG MONTHLY FOR 3 MONTHS, THEN EVERY 2 MONTHS THEREAFTER, SOLUTION FOR INJECTION, STRENGTH- 40MG/ML
     Route: 031

REACTIONS (2)
  - Blindness unilateral [Unknown]
  - Retinal disorder [Unknown]
